FAERS Safety Report 24982807 (Version 1)
Quarter: 2025Q1

REPORT INFORMATION
  Report Type: Spontaneous
  Country: US (occurrence: US)
  Receive Date: 20250218
  Receipt Date: 20250218
  Transmission Date: 20250408
  Serious: No
  Sender: ABBVIE
  Company Number: US-ABBVIE-6134983

PATIENT
  Sex: Male

DRUGS (1)
  1. RECTIV [Suspect]
     Active Substance: NITROGLYCERIN
     Indication: Anal fissure
     Route: 065

REACTIONS (1)
  - Rectal discharge [Unknown]
